FAERS Safety Report 6047709-4 (Version None)
Quarter: 2009Q1

REPORT INFORMATION
  Report Type: 
  Country: None (occurrence: None)
  Receive Date: 20090123
  Receipt Date: 20090116
  Transmission Date: 20090719
  Serious: Yes (Hospitalization, Other)
  Sender: FDA-Public Use
  Company Number: US-ASTRAZENECA-2009UW01496

PATIENT
  Age: 37 Year
  Sex: Female
  Weight: 47.6 kg

DRUGS (7)
  1. SEROQUEL [Suspect]
     Indication: PSYCHOMOTOR HYPERACTIVITY
     Route: 048
  2. SEROQUEL [Suspect]
     Indication: MOOD SWINGS
     Route: 048
  3. SEROQUEL [Suspect]
     Route: 048
  4. SEROQUEL [Suspect]
     Route: 048
  5. CELEXA [Concomitant]
  6. FANATIZINE [Concomitant]
  7. IRON SUPPLEMENT [Concomitant]

REACTIONS (6)
  - CATARACT [None]
  - CHOLELITHIASIS [None]
  - GASTRIC ULCER [None]
  - INTRAOCULAR LENS IMPLANT [None]
  - MENTAL DISORDER [None]
  - SOMNOLENCE [None]
